FAERS Safety Report 10514560 (Version 2)
Quarter: 2014Q4

REPORT INFORMATION
  Report Type: Report from Study
  Country: US (occurrence: US)
  Receive Date: 20141013
  Receipt Date: 20141113
  Transmission Date: 20150528
  Serious: Yes (Other)
  Sender: FDA-Public Use
  Company Number: US-BAYER-2014-148538

PATIENT
  Age: 83 Year
  Sex: Female

DRUGS (1)
  1. NEXAVAR [Suspect]
     Active Substance: SORAFENIB
     Indication: HEPATIC CANCER
     Dosage: 400 MG, BID
     Route: 048
     Dates: start: 20140924, end: 20141031

REACTIONS (4)
  - Blood pressure increased [None]
  - Drug ineffective [None]
  - Headache [None]
  - Visual field defect [None]

NARRATIVE: CASE EVENT DATE: 201409
